FAERS Safety Report 24322083 (Version 3)
Quarter: 2024Q4

REPORT INFORMATION
  Report Type: Spontaneous
  Country: US (occurrence: US)
  Receive Date: 20240916
  Receipt Date: 20241203
  Transmission Date: 20250114
  Serious: No
  Sender: VIIV
  Company Number: US-ViiV Healthcare Limited-115871

PATIENT
  Sex: Male

DRUGS (4)
  1. CABOTEGRAVIR [Suspect]
     Active Substance: CABOTEGRAVIR
     Indication: Product used for unknown indication
     Dosage: UNK
  2. CABOTEGRAVIR [Suspect]
     Active Substance: CABOTEGRAVIR
  3. CABOTEGRAVIR [Suspect]
     Active Substance: CABOTEGRAVIR
  4. TESTOSTERONE [Concomitant]
     Active Substance: TESTOSTERONE
     Indication: Product used for unknown indication
     Dosage: UNK (INJECTIONS FOR A VERY LONG TIME)
     Route: 030

REACTIONS (12)
  - Injection site pain [Unknown]
  - Asthenia [Recovered/Resolved]
  - Pyrexia [Recovered/Resolved]
  - Muscular weakness [Unknown]
  - Nerve injury [Unknown]
  - Injection site mass [Unknown]
  - Lethargy [Unknown]
  - Fatigue [Unknown]
  - Hypersomnia [Unknown]
  - Feeling hot [Unknown]
  - Myalgia [Unknown]
  - Product administered at inappropriate site [Unknown]
